FAERS Safety Report 19646905 (Version 1)
Quarter: 2021Q3

REPORT INFORMATION
  Report Type: Spontaneous
  Country: CN (occurrence: CN)
  Receive Date: 20210802
  Receipt Date: 20210802
  Transmission Date: 20211014
  Serious: Yes (Other)
  Sender: FDA-Public Use
  Company Number: CN-PFIZER INC-202100924037

PATIENT
  Age: 15 Month
  Sex: Female
  Weight: 9 kg

DRUGS (5)
  1. AZITHROMYCIN ANHYDROUS. [Suspect]
     Active Substance: AZITHROMYCIN ANHYDROUS
     Indication: MYCOPLASMA INFECTION
     Dosage: 0.090 G, 1X/DAY
     Route: 048
     Dates: start: 20210705, end: 20210707
  2. HUANG LONG ZHI KE [Suspect]
     Active Substance: HERBALS
     Indication: THERAPEUTIC PROCEDURE
  3. XIAO ER CHI QIAO QING RE KE LI [Suspect]
     Active Substance: HERBALS
     Indication: COOLING THERAPY
     Dosage: 2 G, 3X/DAY
     Route: 048
     Dates: start: 20210703, end: 20210707
  4. HUANG LONG ZHI KE [Suspect]
     Active Substance: HERBALS
     Indication: COOLING THERAPY
     Dosage: 3 G, 3X/DAY
     Route: 048
     Dates: start: 20210705, end: 20210707
  5. AZITHROMYCIN ANHYDROUS. [Suspect]
     Active Substance: AZITHROMYCIN ANHYDROUS
     Indication: PNEUMONIA

REACTIONS (2)
  - Blood creatine phosphokinase increased [Recovering/Resolving]
  - Blood creatine phosphokinase MB increased [Recovering/Resolving]

NARRATIVE: CASE EVENT DATE: 20210708
